FAERS Safety Report 10078795 (Version 1)
Quarter: 2014Q2

REPORT INFORMATION
  Report Type: Spontaneous
  Country: US (occurrence: US)
  Receive Date: 20140415
  Receipt Date: 20140415
  Transmission Date: 20141212
  Serious: No
  Sender: FDA-Public Use
  Company Number: US-BAYER-2014-055170

PATIENT
  Age: 72 Year
  Sex: Female
  Weight: 68.03 kg

DRUGS (7)
  1. ALEVE CAPLET [Suspect]
     Indication: BACK PAIN
     Dosage: 2 DF, PRN
     Route: 048
     Dates: start: 2013
  2. DILTIAZEM [Concomitant]
  3. GLIPIZIDE [Concomitant]
  4. TAMSULOSIN [Concomitant]
  5. METFORMIN [Concomitant]
  6. DOXEPIN [Concomitant]
  7. LORAZEPAM [Concomitant]

REACTIONS (1)
  - Drug ineffective [None]
